FAERS Safety Report 18169764 (Version 1)
Quarter: 2020Q3

REPORT INFORMATION
  Report Type: Spontaneous
  Country: JP (occurrence: JP)
  Receive Date: 20200819
  Receipt Date: 20200819
  Transmission Date: 20201103
  Serious: Yes (Other)
  Sender: FDA-Public Use
  Company Number: JP-GLAXOSMITHKLINE-JP2020GSK166308

PATIENT
  Age: 83 Year
  Sex: Female

DRUGS (2)
  1. OMEGA?3?ACID ETHYL ESTERS. [Suspect]
     Active Substance: OMEGA-3-ACID ETHYL ESTERS
     Dosage: 2 G, 90
     Route: 065
  2. OMEGA?3?ACID ETHYL ESTERS. [Suspect]
     Active Substance: OMEGA-3-ACID ETHYL ESTERS
     Indication: HYPERLIPIDAEMIA
     Dosage: 1 DF, 1D , 90
     Route: 065

REACTIONS (8)
  - Blood triglycerides increased [Unknown]
  - Low density lipoprotein increased [Unknown]
  - Asthma [Unknown]
  - Blood pressure increased [Unknown]
  - Flatulence [Unknown]
  - Inappropriate schedule of product administration [Unknown]
  - Abdominal discomfort [Unknown]
  - Blood pressure decreased [Unknown]
